FAERS Safety Report 4746445-1 (Version None)
Quarter: 2005Q3

REPORT INFORMATION
  Report Type: 
  Country: None (occurrence: None)
  Receive Date: 20050816
  Receipt Date: 20050816
  Transmission Date: 20060218
  Serious: Yes (Hospitalization)
  Sender: FDA-Public Use
  Company Number: None

PATIENT
  Age: 21 Year
  Sex: Female

DRUGS (5)
  1. CIPROFLOXACIN [Suspect]
     Indication: URINARY TRACT INFECTION
     Dosage: 500MG TWICE DAILY ORAL
     Route: 048
     Dates: start: 20050809, end: 20050813
  2. METOCLOPRAMIDE [Concomitant]
  3. YASMIN [Concomitant]
  4. DROSPIRENONE [Concomitant]
  5. KETOC [Concomitant]

REACTIONS (4)
  - CONVULSION [None]
  - DYSPHAGIA [None]
  - SPEECH DISORDER [None]
  - SWOLLEN TONGUE [None]
